FAERS Safety Report 10638226 (Version 1)
Quarter: 2014Q4

REPORT INFORMATION
  Report Type: Spontaneous
  Country: US (occurrence: None)
  Receive Date: 20141121
  Receipt Date: 20141121
  Transmission Date: 20150529
  Serious: No
  Sender: FDA-Public Use
  Company Number: 163-10004-14072381

PATIENT
  Age: 66 Year
  Sex: Female
  Weight: 52.62 kg

DRUGS (1)
  1. OTEZLA [Suspect]
     Active Substance: APREMILAST
     Indication: PSORIASIS
     Dosage: 60 MG, 2 IN 1 D, PO
     Route: 048
     Dates: start: 20140610, end: 20140708

REACTIONS (2)
  - Drug ineffective [None]
  - Depression [None]
